FAERS Safety Report 16558524 (Version 1)
Quarter: 2019Q3

REPORT INFORMATION
  Report Type: Spontaneous
  Country: US (occurrence: US)
  Receive Date: 20190530
  Receipt Date: 20190530
  Transmission Date: 20191004
  Serious: No
  Sender: FDA-Public Use
  Company Number: None

PATIENT

DRUGS (2)
  1. METHOCARBAMOL. [Suspect]
     Active Substance: METHOCARBAMOL
  2. METHOCARBAMOL. [Suspect]
     Active Substance: METHOCARBAMOL

REACTIONS (3)
  - Transcription medication error [None]
  - Incorrect dose administered [None]
  - Product dispensing error [None]
